FAERS Safety Report 7965729-7 (Version None)
Quarter: 2011Q4

REPORT INFORMATION
  Report Type: 
  Country: None (occurrence: None)
  Receive Date: 20111208
  Receipt Date: 20111130
  Transmission Date: 20120403
  Serious: Yes (Hospitalization)
  Sender: FDA-Public Use
  Company Number: US-AMGEN-USASP2011063999

PATIENT
  Sex: Female
  Weight: 68.027 kg

DRUGS (1)
  1. PROCRIT [Suspect]
     Indication: ANAEMIA
     Dosage: UNK, QMO

REACTIONS (3)
  - HOSPITALISATION [None]
  - BEDRIDDEN [None]
  - DRUG DOSE OMISSION [None]
